FAERS Safety Report 8185309-0 (Version None)
Quarter: 2012Q1

REPORT INFORMATION
  Report Type: 
  Country: None (occurrence: None)
  Receive Date: 20120305
  Receipt Date: 20120227
  Transmission Date: 20120608
  Serious: Yes (Hospitalization)
  Sender: FDA-Public Use
  Company Number: PHHY2011US56344

PATIENT
  Sex: Male
  Weight: 82 kg

DRUGS (2)
  1. EXJADE [Suspect]
     Indication: SICKLE CELL ANAEMIA
     Dosage: 2500 MG, DAILY
     Route: 048
     Dates: start: 20100727, end: 20111227
  2. EXJADE [Suspect]
     Dosage: 1500 MG, UNK
     Route: 048

REACTIONS (3)
  - INCORRECT DOSE ADMINISTERED [None]
  - SICKLE CELL ANAEMIA WITH CRISIS [None]
  - PNEUMONIA [None]
